FAERS Safety Report 8896035 (Version 1)
Quarter: 2012Q4

REPORT INFORMATION
  Report Type: 
  Country: JP (occurrence: JP)
  Receive Date: 20121108
  Receipt Date: 20121108
  Transmission Date: 20130627
  Serious: Yes (Death, Hospitalization, Other)
  Sender: FDA-Public Use
  Company Number: JP-009507513-2007SP017684

PATIENT
  Age: 41 Year
  Sex: Female
  Weight: 56 kg

DRUGS (14)
  1. TEMOZOLOMIDE [Suspect]
     Indication: GLIOBLASTOMA MULTIFORME
     Dosage: 150 mg/m2, QD
     Route: 048
     Dates: start: 20061121, end: 20061125
  2. TEMOZOLOMIDE [Suspect]
     Dosage: 200 mg/m2, QD
     Route: 048
     Dates: start: 20061219, end: 20061223
  3. TEMOZOLOMIDE [Suspect]
     Dosage: 200 mg/m2, QD
     Route: 048
     Dates: start: 20070116, end: 20070120
  4. TEMOZOLOMIDE [Suspect]
     Dosage: 200 mg/m2, QD
     Route: 048
     Dates: start: 20070213, end: 20070217
  5. TEMOZOLOMIDE [Suspect]
     Dosage: 200 mg/m2, QD
     Route: 048
     Dates: start: 20070313, end: 20070317
  6. TEMOZOLOMIDE [Suspect]
     Dosage: 200 mg/m2, QD
     Route: 048
     Dates: start: 20070410, end: 20070414
  7. BAKTAR [Concomitant]
     Indication: ANTIFUNGAL PROPHYLAXIS
     Route: 048
     Dates: start: 20070409
  8. MYSTAN [Concomitant]
     Route: 048
  9. DEPAKENE [Concomitant]
     Route: 048
  10. PREDONINE [Concomitant]
     Dosage: 5 mg, qd
     Route: 048
     Dates: start: 20040416, end: 20070428
  11. TEGRETOL [Concomitant]
     Route: 048
  12. TAKEPRON [Concomitant]
     Indication: PROPHYLAXIS
     Route: 048
  13. MAGLAX (MAGNESIUM OXIDE) [Concomitant]
     Indication: PROPHYLAXIS
     Route: 048
     Dates: start: 20061218
  14. PURSENNID (SENNOSIDES) [Concomitant]
     Indication: PROPHYLAXIS
     Route: 048
     Dates: start: 20061218

REACTIONS (2)
  - Acute hepatitis B [Fatal]
  - Lymphocyte count decreased [Unknown]
